FAERS Safety Report 21887008 (Version 1)
Quarter: 2023Q1

REPORT INFORMATION
  Report Type: 
  Country: None (occurrence: None)
  Receive Date: 20230119
  Receipt Date: 20230119
  Transmission Date: 20230418
  Serious: Yes (Hospitalization, Other)
  Sender: FDA-Public Use
  Company Number: None

PATIENT

DRUGS (1)
  1. FLUTICASONE PROPIONATE [Suspect]
     Active Substance: FLUTICASONE PROPIONATE

REACTIONS (9)
  - Headache [Unknown]
  - Epistaxis [Unknown]
  - Rhinalgia [Unknown]
  - Deafness unilateral [Unknown]
  - Dysphagia [Unknown]
  - Laryngitis [Unknown]
  - Aphonia [Recovered/Resolved]
  - Nephrolithiasis [Recovered/Resolved]
  - Blood pressure increased [Unknown]
